FAERS Safety Report 9138078 (Version 1)
Quarter: 2013Q1

REPORT INFORMATION
  Report Type: Spontaneous
  Country: US (occurrence: US)
  Receive Date: 20130304
  Receipt Date: 20130304
  Transmission Date: 20140127
  Serious: No
  Sender: FDA-Public Use
  Company Number: US-PFIZER INC-2013073726

PATIENT
  Sex: Female

DRUGS (1)
  1. ZOLOFT [Suspect]
     Dosage: UNK

REACTIONS (6)
  - Therapeutic response unexpected [Unknown]
  - Speech disorder [Unknown]
  - Dysarthria [Unknown]
  - Memory impairment [Unknown]
  - Illiteracy [Unknown]
  - Thinking abnormal [Unknown]
